FAERS Safety Report 7094923-5 (Version None)
Quarter: 2010Q4

REPORT INFORMATION
  Report Type: 
  Country: None (occurrence: None)
  Receive Date: 20101111
  Receipt Date: 20101103
  Transmission Date: 20110411
  Serious: No
  Sender: FDA-Public Use
  Company Number: US-BIOGENIDEC-2010BI037772

PATIENT
  Age: 39 Year
  Sex: Female

DRUGS (4)
  1. TYSABRI [Suspect]
     Indication: MULTIPLE SCLEROSIS
     Route: 042
     Dates: start: 20090210
  2. COPAXONE [Concomitant]
     Indication: MULTIPLE SCLEROSIS
  3. REBIF [Concomitant]
     Indication: MULTIPLE SCLEROSIS
  4. SOLU-MEDROL [Concomitant]
     Indication: PRODUCT USED FOR UNKNOWN INDICATION

REACTIONS (7)
  - CHEST PAIN [None]
  - DEPRESSION [None]
  - ERYTHEMA [None]
  - GAIT DISTURBANCE [None]
  - INCORRECT ROUTE OF DRUG ADMINISTRATION [None]
  - MEMORY IMPAIRMENT [None]
  - VISUAL ACUITY REDUCED [None]
